FAERS Safety Report 19750724 (Version 3)
Quarter: 2021Q4

REPORT INFORMATION
  Report Type: Spontaneous
  Country: PL (occurrence: PL)
  Receive Date: 20210826
  Receipt Date: 20211222
  Transmission Date: 20220303
  Serious: Yes (Hospitalization, Other)
  Sender: FDA-Public Use
  Company Number: PL-002147023-NVSC2021PL140813

PATIENT
  Age: 62 Year
  Sex: Male
  Weight: 98 kg

DRUGS (14)
  1. ASPIRIN [Suspect]
     Active Substance: ASPIRIN
     Indication: Product used for unknown indication
     Dosage: 75 MILLIGRAM DAILY; 75 MG, QD (IN THE EVENING) , THERAPY START DATE AND END DATE : ASKU
     Route: 065
  2. AMLODIPINE [Suspect]
     Active Substance: AMLODIPINE BESYLATE
     Indication: Product used for unknown indication
     Dosage: 10 MILLIGRAM DAILY; 10 MG, QD (IN MORNING) ,THERAPY START DATE AND END DATE : ASKU
     Route: 065
  3. FLUTICASONE PROPIONATE\SALMETEROL XINAFOATE [Suspect]
     Active Substance: FLUTICASONE PROPIONATE\SALMETEROL XINAFOATE
     Indication: Product used for unknown indication
     Dosage: 2 DF (250 UG +50 UG) INHALATION ,THERAPY START DATE AND END DATE : ASKU
     Route: 055
  4. METFORMIN [Suspect]
     Active Substance: METFORMIN HYDROCHLORIDE
     Indication: Product used for unknown indication
     Dosage: 2550 MILLIGRAM DAILY; 850 MG, TID
     Route: 065
  5. METFORMIN [Suspect]
     Active Substance: METFORMIN HYDROCHLORIDE
     Dosage: 2550 MILLIGRAM DAILY; 2550 MG, QD
     Route: 065
  6. PANTOPRAZOLE [Suspect]
     Active Substance: PANTOPRAZOLE
     Indication: Product used for unknown indication
     Dosage: 20 MILLIGRAM DAILY; 20 MG, QD (IN THE MORNING) ,THERAPY START DATE AND END DATE : ASKU
     Route: 065
  7. ROSUVASTATIN [Suspect]
     Active Substance: ROSUVASTATIN
     Indication: Product used for unknown indication
     Dosage: 10 MILLIGRAM DAILY; 10 MG, QD (IN THE EVENING) ,THERAPY START DATE AND END DATE : ASKU
     Route: 065
  8. TELMISARTAN [Suspect]
     Active Substance: TELMISARTAN
     Indication: Product used for unknown indication
     Dosage: 80 MILLIGRAM DAILY; 80 MG, QD (IN MORNING ,THERAPY START DATE AND END DATE : ASKU
     Route: 065
  9. FENOBIBRATE [Suspect]
     Active Substance: FENOFIBRATE
     Indication: Product used for unknown indication
     Dosage: 215 MILLIGRAM DAILY; 215 MG, QD (IN THE MORNING) ,THERAPY START DATE AND END DATE : ASKU
     Route: 065
  10. HYDROCHLOROTHIAZIDE [Suspect]
     Active Substance: HYDROCHLOROTHIAZIDE
     Indication: Product used for unknown indication
     Dosage: 12.5 MILLIGRAM DAILY; 12.5 MG, QD (IN MORNING ,THERAPY START DATE AND END DATE : ASKU
     Route: 065
  11. LINAGLIPTIN [Suspect]
     Active Substance: LINAGLIPTIN
     Indication: Product used for unknown indication
     Dosage: 5 MILLIGRAM DAILY; 5 MG, QD, THERAPY START DATE AND END DATE : ASKU
     Route: 065
  12. CARVEDILOL [Suspect]
     Active Substance: CARVEDILOL
     Indication: Product used for unknown indication
     Dosage: 12.5 MILLIGRAM DAILY; 12.5 MG, QD
     Route: 065
  13. CARVEDILOL [Suspect]
     Active Substance: CARVEDILOL
     Dosage: 25 MILLIGRAM DAILY; 12.5 MG, BID
     Route: 065
  14. TRIMETAZIDINE [Suspect]
     Active Substance: TRIMETAZIDINE
     Indication: Product used for unknown indication
     Dosage: 40 MILLIGRAM DAILY; 20 MG, BID (MORNING AND EVENING) , THERAPY START DATE AND END DATE : ASKU
     Route: 065

REACTIONS (26)
  - Cardiac failure [Unknown]
  - Electrocardiogram QT prolonged [Unknown]
  - Tricuspid valve incompetence [Unknown]
  - Mitral valve incompetence [Unknown]
  - Ventricular tachycardia [Unknown]
  - Ventricular arrhythmia [Unknown]
  - Diastolic dysfunction [Unknown]
  - Intestinal obstruction [Unknown]
  - Syncope [Unknown]
  - Hypotension [Unknown]
  - Fatigue [Unknown]
  - Supraventricular tachycardia [Unknown]
  - Cardiomegaly [Unknown]
  - Ejection fraction decreased [Unknown]
  - Rales [Unknown]
  - Bundle branch block left [Unknown]
  - Joint swelling [Unknown]
  - Left ventricular dysfunction [Unknown]
  - Pulmonary valve disease [Unknown]
  - Stenosis [Unknown]
  - Pericardial disease [Unknown]
  - Mitral valve disease [Unknown]
  - Ill-defined disorder [Unknown]
  - Cardiac discomfort [Unknown]
  - Skin lesion [Unknown]
  - Physical examination abnormal [Unknown]

NARRATIVE: CASE EVENT DATE: 20200901
